FAERS Safety Report 15901033 (Version 3)
Quarter: 2020Q1

REPORT INFORMATION
  Report Type: Spontaneous
  Country: US (occurrence: US)
  Receive Date: 20190201
  Receipt Date: 20200122
  Transmission Date: 20200409
  Serious: Yes (Other)
  Sender: FDA-Public Use
  Company Number: US-ASTRAZENECA-2019SE09601

PATIENT
  Age: 21342 Day
  Sex: Female
  Weight: 89.8 kg

DRUGS (37)
  1. NEXIUM [Suspect]
     Active Substance: ESOMEPRAZOLE MAGNESIUM
     Indication: OESOPHAGEAL DISORDER
     Dosage: GENERIC
     Route: 065
     Dates: start: 2011, end: 2016
  2. ZANTAC [Concomitant]
     Active Substance: RANITIDINE HYDROCHLORIDE
     Dosage: ZANTAC 300
     Route: 065
     Dates: start: 1982, end: 1983
  3. ZANTAC [Concomitant]
     Active Substance: RANITIDINE HYDROCHLORIDE
     Dosage: ZANTAC 75
     Route: 065
     Dates: start: 1982, end: 1983
  4. NEXIUM [Suspect]
     Active Substance: ESOMEPRAZOLE MAGNESIUM
     Indication: OESOPHAGEAL DISORDER
     Dosage: 40.0MG UNKNOWN
     Route: 048
     Dates: start: 20111029, end: 20171020
  5. VITAMIN D2 [Concomitant]
     Active Substance: ERGOCALCIFEROL
     Dates: start: 20111029
  6. ASCOT [Concomitant]
     Indication: BONE LOSS
     Route: 065
     Dates: start: 2004
  7. NEXIUM [Suspect]
     Active Substance: ESOMEPRAZOLE MAGNESIUM
     Indication: OESOPHAGEAL DISORDER
     Route: 048
     Dates: start: 2011, end: 2016
  8. NEXIUM [Suspect]
     Active Substance: ESOMEPRAZOLE MAGNESIUM
     Indication: OESOPHAGEAL DISORDER
     Dosage: UNKNOWN
     Route: 048
     Dates: start: 201412
  9. CIPROFLOXACIN. [Concomitant]
     Active Substance: CIPROFLOXACIN
     Dosage: 500 MG
     Dates: start: 20180124
  10. GABAPENTIN. [Concomitant]
     Active Substance: GABAPENTIN
     Dosage: 400 MG
     Dates: start: 20111021
  11. ALPRAZOLAM. [Concomitant]
     Active Substance: ALPRAZOLAM
     Dates: start: 20111021
  12. MORPHINE SULFATE. [Concomitant]
     Active Substance: MORPHINE SULFATE
     Dosage: 30 MG
     Dates: start: 20130402
  13. CLONIDINE HCL [Concomitant]
     Active Substance: CLONIDINE HYDROCHLORIDE
     Dosage: 0.1 MG
     Dates: start: 20130408
  14. NEXIUM [Suspect]
     Active Substance: ESOMEPRAZOLE MAGNESIUM
     Indication: OESOPHAGEAL DISORDER
     Dosage: UNKNOWN
     Route: 048
     Dates: start: 19950101, end: 20180730
  15. HYDROXYZINE HCL [Concomitant]
     Active Substance: HYDROXYZINE HYDROCHLORIDE
     Dosage: 25 MG
     Dates: start: 20111020
  16. LISINOPRIL. [Concomitant]
     Active Substance: LISINOPRIL
     Indication: BLOOD PRESSURE ABNORMAL
     Route: 065
  17. CALCITRIOL. [Concomitant]
     Active Substance: CALCITRIOL
     Indication: BLOOD CALCIUM DECREASED
     Route: 065
  18. VALIUM [Concomitant]
     Active Substance: DIAZEPAM
     Indication: CRANIAL NERVE DISORDER
     Route: 065
     Dates: start: 1998, end: 2000
  19. OXYCONTIN [Concomitant]
     Active Substance: OXYCODONE HYDROCHLORIDE
     Indication: BONE DISORDER
     Dosage: 30 MG
     Dates: start: 20120111
  20. ZANTAC [Concomitant]
     Active Substance: RANITIDINE HYDROCHLORIDE
     Dosage: ZANTAC 150
     Route: 065
     Dates: start: 1982, end: 1983
  21. NEXIUM [Suspect]
     Active Substance: ESOMEPRAZOLE MAGNESIUM
     Indication: OESOPHAGEAL DISORDER
     Dosage: GENERIC UNKNOWN
     Route: 065
     Dates: start: 201612, end: 201707
  22. PREDNISONE. [Concomitant]
     Active Substance: PREDNISONE
     Dates: start: 20111122
  23. GABAPENTIN. [Concomitant]
     Active Substance: GABAPENTIN
     Dosage: 30 MG
     Dates: start: 20130402
  24. NEXIUM [Suspect]
     Active Substance: ESOMEPRAZOLE MAGNESIUM
     Indication: OESOPHAGEAL DISORDER
     Dosage: UNKNOWN
     Route: 048
     Dates: start: 201610
  25. NEXIUM [Suspect]
     Active Substance: ESOMEPRAZOLE MAGNESIUM
     Indication: OESOPHAGEAL DISORDER
     Dosage: UNKNOWN
     Route: 048
     Dates: start: 201709
  26. NYSTOP [Concomitant]
     Active Substance: NYSTATIN
     Dates: start: 20180124
  27. LEVOFLOXACIN. [Concomitant]
     Active Substance: LEVOFLOXACIN
     Dosage: 500 MG
     Dates: start: 20111021
  28. DIAZEPAM. [Concomitant]
     Active Substance: DIAZEPAM
     Dosage: 10 MG
     Dates: start: 20121207
  29. OXYCONTIN [Concomitant]
     Active Substance: OXYCODONE HYDROCHLORIDE
     Indication: GOUT
     Dosage: 30 MG
     Dates: start: 20120111
  30. ASPIRIN. [Concomitant]
     Active Substance: ASPIRIN
     Indication: SYMBOLIC DYSFUNCTION
     Route: 065
     Dates: start: 2014
  31. OXYCODONE HYDROCHLORIDE. [Concomitant]
     Active Substance: OXYCODONE HYDROCHLORIDE
     Dosage: 30 MG
     Dates: start: 20120111
  32. COLCHICINE. [Concomitant]
     Active Substance: COLCHICINE
     Indication: GOUT
     Route: 065
  33. ZANTAC [Concomitant]
     Active Substance: RANITIDINE HYDROCHLORIDE
     Route: 065
     Dates: start: 1982, end: 1983
  34. NEXIUM [Suspect]
     Active Substance: ESOMEPRAZOLE MAGNESIUM
     Indication: OESOPHAGEAL DISORDER
     Dosage: 40.0MG UNKNOWN
     Route: 048
     Dates: start: 201110
  35. SYNTHROID [Concomitant]
     Active Substance: LEVOTHYROXINE SODIUM
     Indication: THYROID CANCER
     Dates: start: 20111207
  36. METOPROLOL. [Concomitant]
     Active Substance: METOPROLOL
     Dosage: 100 MG
     Dates: start: 20111209
  37. METOLAZONE. [Concomitant]
     Active Substance: METOLAZONE
     Indication: BLOOD PRESSURE ABNORMAL
     Route: 065

REACTIONS (4)
  - Chronic kidney disease [Not Recovered/Not Resolved]
  - Hyperchlorhydria [Unknown]
  - Haematuria [Unknown]
  - Renal failure [Unknown]

NARRATIVE: CASE EVENT DATE: 20161101
